FAERS Safety Report 18003296 (Version 4)
Quarter: 2024Q4

REPORT INFORMATION
  Report Type: Spontaneous
  Country: US (occurrence: US)
  Receive Date: 20200709
  Receipt Date: 20241105
  Transmission Date: 20250114
  Serious: No
  Sender: ASTELLAS
  Company Number: US-ASTELLAS-2019US040066

PATIENT
  Age: 91 Year
  Sex: Male

DRUGS (1)
  1. MYRBETRIQ [Suspect]
     Active Substance: MIRABEGRON
     Indication: Product used for unknown indication
     Dosage: 50 MG, ONCE DAILY
     Route: 065
     Dates: start: 201909

REACTIONS (1)
  - Genital rash [Not Recovered/Not Resolved]

NARRATIVE: CASE EVENT DATE: 20191001
